FAERS Safety Report 14161186 (Version 1)
Quarter: 2017Q4

REPORT INFORMATION
  Report Type: Spontaneous
  Country: US (occurrence: None)
  Receive Date: 20171104
  Receipt Date: 20171104
  Transmission Date: 20180321
  Serious: No
  Sender: FDA-Public Use
  Company Number: None

PATIENT
  Sex: Female

DRUGS (2)
  1. FORTEO [Suspect]
     Active Substance: TERIPARATIDE
     Indication: OSTEOPOROSIS
     Route: 058
     Dates: start: 20171004
  2. METHOTREXATE 2.5MG [Suspect]
     Active Substance: METHOTREXATE
     Route: 048
     Dates: start: 20170112

REACTIONS (1)
  - Sinusitis [None]
